FAERS Safety Report 17446408 (Version 1)
Quarter: 2020Q1

REPORT INFORMATION
  Report Type: Spontaneous
  Country: US (occurrence: US)
  Receive Date: 20200221
  Receipt Date: 20200221
  Transmission Date: 20200409
  Serious: Yes (Death, Other)
  Sender: FDA-Public Use
  Company Number: NVSC2020US047638

PATIENT
  Age: 49 Year
  Sex: Female

DRUGS (2)
  1. ACETAMINOPHEN (PARACETAMOL) [Suspect]
     Active Substance: ACETAMINOPHEN
     Dosage: 258 MCG/ML, Q6H
     Route: 048
  2. ACETAMINOPHEN (PARACETAMOL) [Suspect]
     Active Substance: ACETAMINOPHEN
     Indication: PRODUCT USED FOR UNKNOWN INDICATION
     Dosage: 2-3 TABLETS (EVERY 4-6 HOURS)
     Route: 048

REACTIONS (11)
  - Tachypnoea [Unknown]
  - Toxicity to various agents [Fatal]
  - Ascites [Unknown]
  - Areflexia [Unknown]
  - Abdominal pain upper [Unknown]
  - Confusional state [Unknown]
  - Pancreatitis [Unknown]
  - Acute respiratory distress syndrome [Unknown]
  - Splenic infarction [Unknown]
  - Pneumonia aspiration [Unknown]
  - Hypoglycaemia [Unknown]
